FAERS Safety Report 12916282 (Version 1)
Quarter: 2016Q4

REPORT INFORMATION
  Report Type: Report from Study
  Country: DE (occurrence: DE)
  Receive Date: 20161107
  Receipt Date: 20161107
  Transmission Date: 20170207
  Serious: Yes (Death, Other)
  Sender: FDA-Public Use
  Company Number: DE-ROCHE-1847975

PATIENT

DRUGS (2)
  1. CAPECITABINE. [Suspect]
     Active Substance: CAPECITABINE
     Indication: COLORECTAL CANCER METASTATIC
     Route: 048
  2. IRINOTECAN [Suspect]
     Active Substance: IRINOTECAN
     Indication: COLORECTAL CANCER METASTATIC
     Route: 042

REACTIONS (9)
  - Diarrhoea [Fatal]
  - Sepsis [Fatal]
  - Palmar-plantar erythrodysaesthesia syndrome [Unknown]
  - Neutropenia [Unknown]
  - Thrombocytopenia [Unknown]
  - Asthenia [Unknown]
  - Febrile neutropenia [Fatal]
  - Multiple organ dysfunction syndrome [Fatal]
  - Vomiting [Unknown]
